FAERS Safety Report 23299172 (Version 2)
Quarter: 2024Q1

REPORT INFORMATION
  Report Type: Report from Study
  Country: US (occurrence: US)
  Receive Date: 20231215
  Receipt Date: 20240116
  Transmission Date: 20240410
  Serious: No
  Sender: FDA-Public Use
  Company Number: US-ACADIA PHARMACEUTICALS INC.-ACA-2023-TRF-005388

PATIENT
  Sex: Female

DRUGS (3)
  1. DAYBUE [Suspect]
     Active Substance: TROFINETIDE
     Dosage: 10 MILLILITER
     Route: 065
  2. DAYBUE [Suspect]
     Active Substance: TROFINETIDE
     Dosage: 1 MILLILITER
     Route: 065
  3. DAYBUE [Suspect]
     Active Substance: TROFINETIDE
     Dosage: WE?RE UP TO 2.5 ML AFTER BREAKFAST AND 2 AFTER DINNER.
     Route: 065

REACTIONS (5)
  - Underdose [Unknown]
  - Product dose omission issue [Unknown]
  - Refusal of treatment by patient [Unknown]
  - Diarrhoea [Unknown]
  - Vomiting [Unknown]
